FAERS Safety Report 20694634 (Version 5)
Quarter: 2022Q3

REPORT INFORMATION
  Report Type: Spontaneous
  Country: FR (occurrence: FR)
  Receive Date: 20220411
  Receipt Date: 20220808
  Transmission Date: 20221027
  Serious: Yes (Hospitalization, Other)
  Sender: FDA-Public Use
  Company Number: FR-NOVARTISPH-NVSC2022FR081036

PATIENT
  Age: 72 Year
  Sex: Male
  Weight: 89 kg

DRUGS (6)
  1. LUTATHERA [Suspect]
     Active Substance: LUTETIUM OXODOTREOTIDE LU-177
     Indication: Neuroendocrine tumour
     Dosage: 7.64 BQ
     Route: 042
     Dates: start: 20220331, end: 20220331
  2. ARGININE\LYSINE [Suspect]
     Active Substance: ARGININE\LYSINE
     Indication: Drug therapy
     Dosage: 1000 ML (250 (ML/H))
     Route: 042
     Dates: start: 20220331, end: 20220331
  3. ARGININE\LYSINE [Suspect]
     Active Substance: ARGININE\LYSINE
     Indication: Prophylaxis
  4. FLUOXETINE [Concomitant]
     Active Substance: FLUOXETINE HYDROCHLORIDE
     Indication: Product used for unknown indication
     Dosage: 40 MG (DAILY)
     Route: 048
  5. IRBESARTAN [Concomitant]
     Active Substance: IRBESARTAN
     Indication: Product used for unknown indication
     Dosage: 150 MG (DAILY)
     Route: 048
  6. SMECTA [Concomitant]
     Active Substance: MONTMORILLONITE
     Indication: Product used for unknown indication
     Dosage: 3 DOSES (DAILY) (FORMULATION: BAG)
     Route: 048

REACTIONS (1)
  - Hyperkalaemia [Recovered/Resolved]

NARRATIVE: CASE EVENT DATE: 20220331
